FAERS Safety Report 5009261-1 (Version None)
Quarter: 2006Q2

REPORT INFORMATION
  Report Type: 
  Country: None (occurrence: None)
  Receive Date: 20060522
  Receipt Date: 20060512
  Transmission Date: 20061013
  Serious: Yes (Hospitalization, Other)
  Sender: FDA-Public Use
  Company Number: 2006BI005495

PATIENT
  Age: 60 Year
  Sex: Female

DRUGS (1)
  1. AVONEX [Suspect]
     Indication: MULTIPLE SCLEROSIS
     Dosage: 30 UG;QW;IM
     Route: 030
     Dates: start: 20051001, end: 20051001

REACTIONS (4)
  - EXOSTOSIS [None]
  - INFLUENZA LIKE ILLNESS [None]
  - PULMONARY HYPERTENSION [None]
  - PYREXIA [None]
